FAERS Safety Report 8828749 (Version 1)
Quarter: 2012Q4

REPORT INFORMATION
  Report Type: 
  Country: FR (occurrence: FR)
  Receive Date: 20121008
  Receipt Date: 20121008
  Transmission Date: 20130627
  Serious: Yes (Other)
  Sender: FDA-Public Use
  Company Number: FR-ROCHE-1141887

PATIENT
  Sex: Male

DRUGS (4)
  1. ROACTEMRA [Suspect]
     Indication: RHEUMATOID ARTHRITIS
     Route: 065
  2. METHOTREXATE [Suspect]
     Indication: RHEUMATOID ARTHRITIS
     Route: 065
  3. METHOTREXATE [Suspect]
     Route: 065
  4. CORTANCYL [Concomitant]
     Indication: RHEUMATOID ARTHRITIS

REACTIONS (1)
  - Hepatocellular injury [Unknown]
